FAERS Safety Report 12485500 (Version 1)
Quarter: 2016Q2

REPORT INFORMATION
  Report Type: Spontaneous
  Country: US (occurrence: US)
  Receive Date: 20160621
  Receipt Date: 20160621
  Transmission Date: 20160815
  Serious: No
  Sender: FDA-Public Use
  Company Number: US-SA-2016SA067836

PATIENT
  Age: 10 Year
  Sex: Female
  Weight: 35.4 kg

DRUGS (9)
  1. CEREZYME [Suspect]
     Active Substance: IMIGLUCERASE
     Dosage: DOSE:79.14 UNIT(S)/KILOGRAM BODYWEIGHT
     Route: 042
  2. EPIPEN [Concomitant]
     Active Substance: EPINEPHRINE
     Indication: ANAPHYLACTIC REACTION
     Dates: start: 20160309
  3. NORMAL SALINE [Concomitant]
     Active Substance: SODIUM CHLORIDE
     Indication: MEDICATION DILUTION
     Dates: start: 20160309
  4. CEREZYME [Suspect]
     Active Substance: IMIGLUCERASE
     Dosage: DOSE:79.14 UNIT(S)/KILOGRAM BODYWEIGHT
     Route: 042
  5. SODIUM CHLORIDE. [Concomitant]
     Active Substance: SODIUM CHLORIDE
     Indication: FLUSHING
     Dates: start: 20160309
  6. ADVIL [Concomitant]
     Active Substance: IBUPROFEN
     Dates: start: 20130807
  7. VITAMINS NOS [Concomitant]
     Active Substance: VITAMINS
     Dates: start: 20130807
  8. DIPHENHYDRAMINE. [Concomitant]
     Active Substance: DIPHENHYDRAMINE
     Indication: ANAPHYLACTIC REACTION
     Dates: start: 20160309
  9. L-M-X [Concomitant]
     Route: 061
     Dates: start: 20160309

REACTIONS (1)
  - Pharyngitis streptococcal [Unknown]
